FAERS Safety Report 18115338 (Version 2)
Quarter: 2020Q3

REPORT INFORMATION
  Report Type: Report from Study
  Country: US (occurrence: US)
  Receive Date: 20200805
  Receipt Date: 20200810
  Transmission Date: 20201103
  Serious: Yes (Congenital Anomaly, Other)
  Sender: FDA-Public Use
  Company Number: US-PFIZER INC-2005166977

PATIENT
  Sex: Female
  Weight: 2.76 kg

DRUGS (8)
  1. COMBIVIR [Suspect]
     Active Substance: LAMIVUDINE\ZIDOVUDINE
     Indication: HIV TEST POSITIVE
     Dosage: 600/300 MG A DAY
     Route: 064
     Dates: end: 20050906
  2. VIRACEPT [Suspect]
     Active Substance: NELFINAVIR MESYLATE
     Dosage: 2500 MG, DAILY
     Route: 064
     Dates: end: 20050526
  3. METRONIDAZOLE. [Suspect]
     Active Substance: METRONIDAZOLE
     Route: 064
  4. TOBACCO [Suspect]
     Active Substance: TOBACCO LEAF
     Route: 064
  5. FOLATE [Suspect]
     Active Substance: FOLATE SODIUM
     Route: 064
  6. SULFAMETHOXAZOLE/TRIMETHOPRIM [Suspect]
     Active Substance: SULFAMETHOXAZOLE\TRIMETHOPRIM
     Route: 064
  7. KALETRA [Suspect]
     Active Substance: LOPINAVIR\RITONAVIR
     Indication: HIV TEST POSITIVE
     Route: 064
     Dates: start: 20050526, end: 20050906
  8. VALPROIC ACID. [Suspect]
     Active Substance: VALPROIC ACID
     Indication: ILL-DEFINED DISORDER
     Route: 064

REACTIONS (6)
  - Meningomyelocele [Unknown]
  - Ventricular septal defect [Unknown]
  - Atrial septal defect [Unknown]
  - Maternal exposure during pregnancy [Unknown]
  - Arnold-Chiari malformation [Unknown]
  - Pulmonary valve stenosis [Unknown]
